FAERS Safety Report 12676855 (Version 1)
Quarter: 2016Q3

REPORT INFORMATION
  Report Type: Spontaneous
  Country: US (occurrence: US)
  Receive Date: 20160823
  Receipt Date: 20160823
  Transmission Date: 20161109
  Serious: Yes (Other)
  Sender: FDA-Public Use
  Company Number: US-PFIZER INC-2016385507

PATIENT
  Sex: Female

DRUGS (1)
  1. DICLOFENAC SODIUM. [Suspect]
     Active Substance: DICLOFENAC SODIUM
     Dosage: 37.5 MG,  4 DF IN 24 HOUR TIME PERIOD
     Route: 042
     Dates: start: 20160804

REACTIONS (1)
  - Stress ulcer [Unknown]

NARRATIVE: CASE EVENT DATE: 20160807
